FAERS Safety Report 14567555 (Version 1)
Quarter: 2018Q1

REPORT INFORMATION
  Report Type: Spontaneous
  Country: US (occurrence: US)
  Receive Date: 20180223
  Receipt Date: 20180223
  Transmission Date: 20180509
  Serious: No
  Sender: FDA-Public Use
  Company Number: None

PATIENT
  Age: 52 Year
  Sex: Female

DRUGS (1)
  1. ENBREL [Suspect]
     Active Substance: ETANERCEPT
     Indication: PSORIASIS
     Route: 058
     Dates: start: 20171129, end: 20180222

REACTIONS (4)
  - Diarrhoea [None]
  - Neuralgia [None]
  - Headache [None]
  - Psoriasis [None]

NARRATIVE: CASE EVENT DATE: 20180208
